FAERS Safety Report 5170794-9 (Version None)
Quarter: 2006Q4

REPORT INFORMATION
  Report Type: 
  Country: None (occurrence: None)
  Receive Date: 20061205
  Receipt Date: 20061205
  Transmission Date: 20070319
  Serious: No
  Sender: FDA-Public Use
  Company Number: None

PATIENT
  Sex: Female

DRUGS (2)
  1. NEULASTA [Suspect]
     Indication: BREAST CANCER
     Dosage: 6MG EVERY 2 WEEKS SUBCUT
     Route: 058
     Dates: start: 20061114
  2. NEULASTA [Suspect]
     Indication: CHEMOTHERAPY
     Dosage: 6MG EVERY 2 WEEKS SUBCUT
     Route: 058
     Dates: start: 20061114

REACTIONS (2)
  - URTICARIA [None]
  - WHITE BLOOD CELL COUNT INCREASED [None]
